FAERS Safety Report 23741443 (Version 1)
Quarter: 2024Q2

REPORT INFORMATION
  Report Type: Spontaneous
  Country: CA (occurrence: CA)
  Receive Date: 20240415
  Receipt Date: 20240415
  Transmission Date: 20240716
  Serious: Yes (Hospitalization, Other)
  Sender: FDA-Public Use
  Company Number: CA-APOTEX-2024AP004504

PATIENT
  Sex: Male

DRUGS (1)
  1. MOMETASONE FUROATE [Suspect]
     Active Substance: MOMETASONE FUROATE
     Indication: Product used for unknown indication
     Dosage: UNK
     Route: 065
     Dates: start: 202402

REACTIONS (5)
  - Coma [Not Recovered/Not Resolved]
  - Shock [Not Recovered/Not Resolved]
  - Rhinitis [Not Recovered/Not Resolved]
  - Haematological infection [Not Recovered/Not Resolved]
  - Bacterial infection [Not Recovered/Not Resolved]
